FAERS Safety Report 5284342-6 (Version None)
Quarter: 2007Q1

REPORT INFORMATION
  Report Type: 
  Country: None (occurrence: None)
  Receive Date: 20070327
  Receipt Date: 20070313
  Transmission Date: 20070707
  Serious: Yes (Other)
  Sender: FDA-Public Use
  Company Number: CERZ-11563

PATIENT
  Age: 24 Year
  Sex: Female
  Weight: 55 kg

DRUGS (1)
  1. CEREZYME [Suspect]
     Indication: GAUCHER'S DISEASE
     Dosage: 60 U/KG Q2WKS IV
     Route: 042
     Dates: start: 20040615, end: 20060401

REACTIONS (4)
  - DRUG SPECIFIC ANTIBODY PRESENT [None]
  - EPILEPSY [None]
  - PROTEIN TOTAL INCREASED [None]
  - RASH [None]
